FAERS Safety Report 5087932-9 (Version None)
Quarter: 2006Q3

REPORT INFORMATION
  Report Type: 
  Country: None (occurrence: None)
  Receive Date: 20060822
  Receipt Date: 20060822
  Transmission Date: 20061208
  Serious: Yes (Other)
  Sender: FDA-Public Use
  Company Number: None

PATIENT
  Age: 32 Year
  Sex: Male
  Weight: 78.4723 kg

DRUGS (2)
  1. ZOSYN [Suspect]
     Indication: ENTEROCOCCAL INFECTION
     Dosage: 4.5GM Q8H IV BOLUS
     Route: 042
     Dates: start: 20060717, end: 20060810
  2. ZOSYN [Suspect]
     Indication: OSTEOMYELITIS
     Dosage: 4.5GM Q8H IV BOLUS
     Route: 042
     Dates: start: 20060717, end: 20060810

REACTIONS (6)
  - BLOOD CREATININE INCREASED [None]
  - NEUTROPENIA [None]
  - PLATELET COUNT INCREASED [None]
  - PRURITUS [None]
  - RASH GENERALISED [None]
  - RASH MACULAR [None]
